FAERS Safety Report 6926944-4 (Version None)
Quarter: 2010Q3

REPORT INFORMATION
  Report Type: 
  Country: None (occurrence: None)
  Receive Date: 20100816
  Receipt Date: 20100709
  Transmission Date: 20110219
  Serious: No
  Sender: FDA-Public Use
  Company Number: US-ABBOTT-10P-163-0656256-00

PATIENT
  Sex: Female
  Weight: 76.272 kg

DRUGS (5)
  1. SIMCOR [Suspect]
     Indication: HYPERLIPIDAEMIA
     Dosage: 1000/20MG
     Dates: start: 20090701
  2. TEKTURNA [Concomitant]
     Indication: PRODUCT USED FOR UNKNOWN INDICATION
  3. HORMONE [Concomitant]
     Indication: PRODUCT USED FOR UNKNOWN INDICATION
  4. JANUMET [Concomitant]
     Indication: PRODUCT USED FOR UNKNOWN INDICATION
  5. ASPIRIN [Concomitant]
     Indication: PRODUCT USED FOR UNKNOWN INDICATION

REACTIONS (4)
  - ERYTHEMA [None]
  - FLUSHING [None]
  - SKIN BURNING SENSATION [None]
  - URTICARIA [None]
